FAERS Safety Report 4499241-7 (Version None)
Quarter: 2004Q3

REPORT INFORMATION
  Report Type: 
  Country: None (occurrence: None)
  Receive Date: 20040928
  Receipt Date: 20040805
  Transmission Date: 20050211
  Serious: No
  Sender: FDA-Public Use
  Company Number: 04P-163-0269376-00

PATIENT
  Age: 42 Year
  Sex: Female

DRUGS (15)
  1. HUMIRA [Suspect]
     Indication: RHEUMATOID ARTHRITIS
     Dosage: 40 MG, 1 IN 2 WK, SUBCUTANEOUS
     Route: 058
     Dates: start: 20030101
  2. LORATADINE [Concomitant]
  3. BUCINDOLOL HYDROCHLORIDE [Concomitant]
  4. METHOTREXATE [Concomitant]
  5. FOLIC ACID [Concomitant]
  6. FOLINIC ACID [Concomitant]
  7. CALCIUM D3 ^STADA^ [Concomitant]
  8. MULTIVITAMIN [Concomitant]
  9. METOPROLOL SUCCINATE [Concomitant]
  10. HYZAAR [Concomitant]
  11. CONJUGATED ESTROGEN [Concomitant]
  12. CYANOCOBALAMIN [Concomitant]
  13. PYRIDOXINE HYDROCHLORIDE [Concomitant]
  14. ULTRACET [Concomitant]
  15. LEXAPRO [Concomitant]

REACTIONS (2)
  - DRUG INEFFECTIVE [None]
  - SEASONAL ALLERGY [None]
